FAERS Safety Report 6851976-4 (Version None)
Quarter: 2010Q3

REPORT INFORMATION
  Report Type: 
  Country: None (occurrence: None)
  Receive Date: 20100717
  Receipt Date: 20071102
  Transmission Date: 20110219
  Serious: No
  Sender: FDA-Public Use
  Company Number: US-PFIZER INC-2007094139

PATIENT
  Sex: Female
  Weight: 88 kg

DRUGS (11)
  1. CHANTIX [Suspect]
     Indication: SMOKING CESSATION THERAPY
     Dates: start: 20060901
  2. WARFARIN SODIUM [Concomitant]
  3. FORADIL [Concomitant]
  4. SPIRIVA [Concomitant]
  5. LYRICA [Concomitant]
  6. CYMBALTA [Concomitant]
  7. FENTANYL [Concomitant]
  8. HYDROCODONE [Concomitant]
  9. CYANOCOBALAMIN [Concomitant]
  10. PREVACID [Concomitant]
  11. PROMETHAZINE [Concomitant]

REACTIONS (1)
  - NAUSEA [None]
